FAERS Safety Report 18535710 (Version 2)
Quarter: 2020Q4

REPORT INFORMATION
  Report Type: Report from Study
  Country: US (occurrence: US)
  Receive Date: 20201123
  Receipt Date: 20201229
  Transmission Date: 20210114
  Serious: Yes (Hospitalization, Other)
  Sender: FDA-Public Use
  Company Number: US-BAYER-2019-210406

PATIENT
  Age: 68 Year
  Sex: Male

DRUGS (19)
  1. LISINOPRIL. [Concomitant]
     Active Substance: LISINOPRIL
     Dosage: UNK
  2. MIRALAX [Concomitant]
     Active Substance: POLYETHYLENE GLYCOL 3350
  3. LIPITOR [Concomitant]
     Active Substance: ATORVASTATIN CALCIUM
  4. CLONIDINE HYDROCHLORIDE. [Concomitant]
     Active Substance: CLONIDINE HYDROCHLORIDE
     Dosage: UNK
  5. NITROSTAT [Concomitant]
     Active Substance: NITROGLYCERIN
  6. PLAVIX [Concomitant]
     Active Substance: CLOPIDOGREL BISULFATE
  7. SYNTHROID [Concomitant]
     Active Substance: LEVOTHYROXINE SODIUM
  8. ESOMEPRAZOLE. [Concomitant]
     Active Substance: ESOMEPRAZOLE MAGNESIUM
  9. ZITHROMAX [Concomitant]
     Active Substance: AZITHROMYCIN DIHYDRATE
     Dosage: UNK
  10. NEXAVAR [Suspect]
     Active Substance: SORAFENIB
     Indication: CONNECTIVE TISSUE NEOPLASM
     Dosage: 200 MG QD
     Route: 048
     Dates: start: 20171221
  11. NEXAVAR [Suspect]
     Active Substance: SORAFENIB
     Indication: MALIGNANT PERITONEAL NEOPLASM
     Dosage: 200 MG, QD
     Route: 048
  12. NEXAVAR [Suspect]
     Active Substance: SORAFENIB
     Indication: CONNECTIVE TISSUE NEOPLASM
     Dosage: 200 MG, QD
     Route: 048
     Dates: start: 20201104
  13. CELEBREX [Concomitant]
     Active Substance: CELECOXIB
     Dosage: UNK
  14. IMDUR [Concomitant]
     Active Substance: ISOSORBIDE MONONITRATE
  15. CALCIUM [Concomitant]
     Active Substance: CALCIUM
     Dosage: UNK
  16. RENVELA [Concomitant]
     Active Substance: SEVELAMER CARBONATE
  17. ERGOCALCIFEROL. [Concomitant]
     Active Substance: ERGOCALCIFEROL
  18. COREG [Concomitant]
     Active Substance: CARVEDILOL
  19. AZITHROMYCIN ANHYDROUS. [Concomitant]
     Active Substance: AZITHROMYCIN ANHYDROUS
     Dosage: UNK

REACTIONS (6)
  - Off label use [None]
  - Pneumonia [Recovered/Resolved]
  - Product use in unapproved indication [None]
  - Hospitalisation [None]
  - Aortic valve replacement [Unknown]
  - Cardiac valve thickening [None]

NARRATIVE: CASE EVENT DATE: 20201104
